FAERS Safety Report 24224166 (Version 1)
Quarter: 2024Q3

REPORT INFORMATION
  Report Type: Spontaneous
  Country: FR (occurrence: FR)
  Receive Date: 20240819
  Receipt Date: 20240819
  Transmission Date: 20241016
  Serious: Yes (Other)
  Sender: BRISTOL MYERS SQUIBB
  Company Number: FR-BRISTOL-MYERS SQUIBB COMPANY-2024-121617

PATIENT
  Age: 102 Year
  Sex: Male

DRUGS (2)
  1. ELIQUIS [Suspect]
     Active Substance: APIXABAN
     Indication: Arrhythmia
  2. ELIQUIS [Suspect]
     Active Substance: APIXABAN
     Indication: Phlebitis
     Dates: start: 202407

REACTIONS (2)
  - Fall [Unknown]
  - Fibula fracture [Unknown]
